FAERS Safety Report 5978995-4 (Version None)
Quarter: 2008Q4

REPORT INFORMATION
  Report Type: 
  Country: None (occurrence: None)
  Receive Date: 20081204
  Receipt Date: 20080520
  Transmission Date: 20090506
  Serious: No
  Sender: FDA-Public Use
  Company Number: US-ABBOTT-08P-163-0455381-00

PATIENT
  Age: 63 Year
  Sex: Male

DRUGS (2)
  1. TRICOR [Suspect]
     Indication: BLOOD TRIGLYCERIDES INCREASED
     Dates: start: 20070906
  2. LITHIUM [Concomitant]
     Indication: DRUG USE FOR UNKNOWN INDICATION

REACTIONS (7)
  - ASTHENIA [None]
  - CHEST PAIN [None]
  - DRUG EFFECT DECREASED [None]
  - EXCESSIVE MASTURBATION [None]
  - EXCESSIVE SEXUAL FANTASIES [None]
  - MANIA [None]
  - TACHYPHRENIA [None]
